FAERS Safety Report 5388385-3 (Version None)
Quarter: 2007Q3

REPORT INFORMATION
  Report Type: 
  Country: None (occurrence: None)
  Receive Date: 20070716
  Receipt Date: 20070713
  Transmission Date: 20080115
  Serious: Yes (Other)
  Sender: FDA-Public Use
  Company Number: A0660960A

PATIENT
  Age: 24 Year
  Sex: Female

DRUGS (3)
  1. ALLI [Suspect]
     Indication: WEIGHT LOSS DIET
     Dosage: 1CAP THREE TIMES PER DAY
     Route: 048
     Dates: start: 20070615, end: 20070629
  2. ONE A DAY WOMEN'S FORMULA [Concomitant]
  3. ADVIL LIQUI-GELS [Concomitant]

REACTIONS (4)
  - ABDOMINAL PAIN [None]
  - FAECAL INCONTINENCE [None]
  - RECTAL DISCHARGE [None]
  - STEATORRHOEA [None]
